FAERS Safety Report 9741012 (Version 3)
Quarter: 2013Q4

REPORT INFORMATION
  Report Type: Spontaneous
  Country: JP (occurrence: JP)
  Receive Date: 20131209
  Receipt Date: 20131230
  Transmission Date: 20140711
  Serious: Yes (Other)
  Sender: FDA-Public Use
  Company Number: PHHY2013JP141165

PATIENT
  Sex: 0

DRUGS (1)
  1. APRESOLINE [Suspect]
     Route: 064

REACTIONS (2)
  - Apgar score low [Unknown]
  - Foetal exposure timing unspecified [Unknown]
